FAERS Safety Report 5410987-6 (Version None)
Quarter: 2007Q3

REPORT INFORMATION
  Report Type: 
  Country: None (occurrence: None)
  Receive Date: 20070810
  Receipt Date: 20070716
  Transmission Date: 20080115
  Serious: No
  Sender: FDA-Public Use
  Company Number: A0661444A

PATIENT
  Age: 16 Month
  Sex: Female
  Weight: 9.5 kg

DRUGS (2)
  1. ALTABAX [Suspect]
     Route: 061
     Dates: start: 20070702, end: 20070703
  2. NO CONCURRENT MEDICATION [Concomitant]

REACTIONS (4)
  - CRYING [None]
  - DERMATITIS DIAPER [None]
  - ERYTHEMA [None]
  - RASH MACULAR [None]
